FAERS Safety Report 6077961-0 (Version None)
Quarter: 2009Q1

REPORT INFORMATION
  Report Type: 
  Country: None (occurrence: None)
  Receive Date: 20090213
  Receipt Date: 20090205
  Transmission Date: 20090719
  Serious: Yes (Hospitalization)
  Sender: FDA-Public Use
  Company Number: DE-TEVA-185088ISR

PATIENT
  Sex: Female
  Weight: 61.5 kg

DRUGS (12)
  1. FLUOROURACIL [Suspect]
     Indication: COLORECTAL CANCER METASTATIC
     Route: 040
     Dates: start: 20080107
  2. FLUOROURACIL [Suspect]
     Route: 041
     Dates: start: 20080107
  3. FOLINIC ACID [Suspect]
     Indication: COLORECTAL CANCER METASTATIC
     Route: 042
     Dates: start: 20080107
  4. IRINOTECAN HYDROCHLORIDE [Suspect]
     Indication: COLORECTAL CANCER METASTATIC
     Route: 042
     Dates: start: 20080107
  5. BEVACIZUMAB [Suspect]
     Indication: COLORECTAL CANCER METASTATIC
     Route: 042
     Dates: start: 20080107
  6. PRAVASTATIN SODIUM [Concomitant]
  7. BUDESONIDE W/FORMOTEROL FUMARATE [Concomitant]
  8. TIOTROPIUM BROMIDE [Concomitant]
  9. OMEPRAZOLE [Concomitant]
  10. ORTHANGIN [Concomitant]
  11. TORSEMIDE [Concomitant]
  12. TOCOPHEROL CONCENTRATE CAP [Concomitant]

REACTIONS (1)
  - SUBILEUS [None]
